FAERS Safety Report 5899745-6 (Version None)
Quarter: 2008Q3

REPORT INFORMATION
  Report Type: 
  Country: None (occurrence: None)
  Receive Date: 20080917
  Receipt Date: 20080903
  Transmission Date: 20090109
  Serious: Yes (Hospitalization)
  Sender: FDA-Public Use
  Company Number: THYM-1000765

PATIENT

DRUGS (50)
  1. THYMOGLOBULIN [Suspect]
     Indication: RENAL TRANSPLANT
     Dosage: 150 MG, QD,
     Dates: start: 20080827, end: 20080828
  2. ACETAMINOPHEN [Concomitant]
  3. ALBUTEROL (SALBUTAMOL SULFATE) [Concomitant]
  4. CIPROFLOXACIN [Concomitant]
  5. DIPHENHYDRAMINE HCL [Concomitant]
  6. EFAVIRENZ [Concomitant]
  7. DOCUSATE SODIUM (DOCUSATE SODIUM) [Concomitant]
  8. INSULIN (INSULIN) [Concomitant]
  9. IPRATROPIUM BROMIDE [Concomitant]
  10. MYCOPHENOLATE MOFETIL [Concomitant]
  11. NYSTATIN [Concomitant]
  12. ONDANSETRON HCL [Concomitant]
  13. PROCHLORPERAZINE MALEATE [Concomitant]
  14. MIDAZOLAM HCL [Concomitant]
  15. FENATYL (FENATYL) [Concomitant]
  16. VANCOMYCIN [Concomitant]
  17. LEVOFLOXACIN (LEVOFOXACIN) [Concomitant]
  18. PROPOFOL [Concomitant]
  19. SUCCINYLCHOLINE CHLORIDE [Concomitant]
  20. VECURONIUM (VECURONIUM) [Concomitant]
  21. METHYLPREDNISOLONE 16MG TAB [Concomitant]
  22. CISATRACURIUM (CISATRACURIUM) [Concomitant]
  23. HYDROMORPHONE HCL [Concomitant]
  24. ALBUTEROL (SALBUTAMOL SULFATE) [Concomitant]
  25. FUROSEMIDE [Concomitant]
  26. MANNITOL [Concomitant]
  27. EPHEDRINE SUL CAP [Concomitant]
  28. GLYCOPYRROLATE [Concomitant]
  29. NEOSTIGMINE (NEOSTIGMINE) [Concomitant]
  30. ESMOLOL (ESMOLOL) [Concomitant]
  31. PHENYLEPHRINE (PHENYLEPHRINE) [Concomitant]
  32. METOPROLOL TARTRATE [Concomitant]
  33. NOREPINEPHRINE BITARTRATE [Concomitant]
  34. ENFLURANE [Concomitant]
  35. SEVOFLURANE [Concomitant]
  36. SULFAMETOXAZOL MED TRIMETOPRIM (SULFAMETHOXAZOLE, TRIMETHOPRIM) [Concomitant]
  37. CALCIUM CHLORIDE [Concomitant]
  38. CALCIUM ACETATE (CALCIUM ACETATE) [Concomitant]
  39. ADVAIR (FLUTICASONE PRPIONATE, SALMETEROL XINAFOATE) [Concomitant]
  40. HEPARIN [Concomitant]
  41. LAMIVUDINE [Concomitant]
  42. LORAZEPAM (LORASEPAM) [Concomitant]
  43. METOPROLOL TARTRATE [Concomitant]
  44. PANTOPRAZOLE SODIUM [Concomitant]
  45. PREDNISONE [Concomitant]
  46. SARNA (SARNA) [Concomitant]
  47. TACROLIMUS [Concomitant]
  48. VALGANCICLOVIR HCL [Concomitant]
  49. RED BLOOD CELLS [Concomitant]
  50. SODIUM CHLORIDE 0.9% [Concomitant]

REACTIONS (4)
  - COMPLICATIONS OF TRANSPLANTED KIDNEY [None]
  - HYPERKALAEMIA [None]
  - HYPOTENSION [None]
  - PYREXIA [None]
